FAERS Safety Report 20909941 (Version 1)
Quarter: 2022Q2

REPORT INFORMATION
  Report Type: Spontaneous
  Country: US (occurrence: US)
  Receive Date: 20220603
  Receipt Date: 20220603
  Transmission Date: 20220721
  Serious: No
  Sender: FDA-Public Use
  Company Number: US-BRISTOL-MYERS SQUIBB COMPANY-2022-035185

PATIENT
  Age: 82 Year
  Sex: Male
  Weight: 59.874 kg

DRUGS (1)
  1. REVLIMID [Suspect]
     Active Substance: LENALIDOMIDE
     Indication: Myelodysplastic syndrome
     Dosage: FREQUENCY:3WKON/1WKOFF
     Route: 048
     Dates: start: 20220323

REACTIONS (1)
  - Rash [Recovering/Resolving]
